FAERS Safety Report 20001754 (Version 7)
Quarter: 2023Q2

REPORT INFORMATION
  Report Type: Report from Study
  Country: FR (occurrence: FR)
  Receive Date: 20211027
  Receipt Date: 20230615
  Transmission Date: 20230722
  Serious: Yes (Death, Other)
  Sender: FDA-Public Use
  Company Number: FR-ABBVIE-20K-056-3663794-00

PATIENT
  Age: 76 Year
  Sex: Male

DRUGS (87)
  1. VENETOCLAX [Suspect]
     Active Substance: VENETOCLAX
     Indication: Chronic lymphocytic leukaemia
     Dosage: 20 MILLIGRAM
     Route: 048
     Dates: start: 20200706, end: 20200712
  2. VENETOCLAX [Suspect]
     Active Substance: VENETOCLAX
     Indication: Chronic lymphocytic leukaemia
     Dosage: 50 MILLIGRAM
     Route: 048
     Dates: start: 20200713, end: 20200719
  3. VENETOCLAX [Suspect]
     Active Substance: VENETOCLAX
     Indication: Chronic lymphocytic leukaemia
     Dosage: 100 MILLIGRAM
     Route: 048
     Dates: start: 20200720, end: 20200726
  4. VENETOCLAX [Suspect]
     Active Substance: VENETOCLAX
     Indication: Chronic lymphocytic leukaemia
     Dosage: 200 MILLIGRAM
     Route: 048
     Dates: start: 20200727, end: 20200802
  5. VENETOCLAX [Suspect]
     Active Substance: VENETOCLAX
     Indication: Chronic lymphocytic leukaemia
     Dosage: 400 MILLIGRAM
     Route: 048
     Dates: start: 20200803
  6. VENETOCLAX [Suspect]
     Active Substance: VENETOCLAX
     Indication: Chronic lymphocytic leukaemia
     Dosage: 300 MILLIGRAM
     Route: 048
     Dates: start: 20221029
  7. VENETOCLAX [Suspect]
     Active Substance: VENETOCLAX
     Indication: Chronic lymphocytic leukaemia
     Dosage: 200 MILLIGRAM
     Route: 048
     Dates: start: 20230304, end: 20230425
  8. VALACYCLOVIR HYDROCHLORIDE [Concomitant]
     Active Substance: VALACYCLOVIR HYDROCHLORIDE
     Indication: Infection prophylaxis
     Route: 065
     Dates: start: 20200624
  9. ROXITHROMYCIN [Concomitant]
     Active Substance: ROXITHROMYCIN
     Indication: Infection prophylaxis
     Route: 065
     Dates: start: 20200624
  10. ALLOPURINOL [Concomitant]
     Active Substance: ALLOPURINOL
     Indication: Metabolic disorder prophylaxis
     Route: 065
     Dates: start: 20200624
  11. ACETAMINOPHEN [Concomitant]
     Active Substance: ACETAMINOPHEN
     Indication: Pain
     Route: 065
     Dates: start: 20200811
  12. DEXCHLORPHENIRAMINE [Concomitant]
     Active Substance: DEXCHLORPHENIRAMINE
     Indication: Allergy prophylaxis
     Dates: start: 20200811, end: 20210105
  13. METHYLPREDNISOLONE [Concomitant]
     Active Substance: METHYLPREDNISOLONE
     Indication: Allergy prophylaxis
     Route: 065
     Dates: start: 20200811, end: 20210105
  14. RITUXIMAB [Concomitant]
     Active Substance: RITUXIMAB
     Indication: Chronic lymphocytic leukaemia
     Dates: start: 20200811, end: 20210105
  15. SODIUM CHLORIDE [Concomitant]
     Active Substance: SODIUM CHLORIDE
     Indication: Fluid replacement
     Route: 065
     Dates: start: 20200811, end: 20210105
  16. FASTURTEC [Concomitant]
     Active Substance: RASBURICASE
     Indication: Metabolic disorder prophylaxis
     Route: 065
     Dates: start: 20200810, end: 20200811
  17. LOVENOX [Concomitant]
     Active Substance: ENOXAPARIN SODIUM
     Indication: Thrombosis prophylaxis
     Dates: start: 20200810, end: 2020
  18. LOVENOX [Concomitant]
     Active Substance: ENOXAPARIN SODIUM
     Indication: Thrombosis prophylaxis
     Dates: start: 20200810
  19. AMLODIPINE [Concomitant]
     Active Substance: AMLODIPINE BESYLATE
     Indication: Hypertension
     Dates: end: 20220210
  20. AMLODIPINE [Concomitant]
     Active Substance: AMLODIPINE BESYLATE
     Indication: Hypertension
     Dosage: ON SET DATE:1999
     Route: 065
     Dates: end: 20220210
  21. CANDESARTAN CILEXETIL\HYDROCHLOROTHIAZIDE [Concomitant]
     Active Substance: CANDESARTAN CILEXETIL\HYDROCHLOROTHIAZIDE
     Indication: Hypertension
     Dates: end: 20210710
  22. CANDESARTAN CILEXETIL\HYDROCHLOROTHIAZIDE [Concomitant]
     Active Substance: CANDESARTAN CILEXETIL\HYDROCHLOROTHIAZIDE
     Indication: Hypertension
     Route: 065
     Dates: end: 20210710
  23. TAMSULOSIN HYDROCHLORIDE [Concomitant]
     Active Substance: TAMSULOSIN HYDROCHLORIDE
     Indication: Hypertension
     Dosage: ON SET DATE:1999
     Route: 065
  24. SOTALOL [Concomitant]
     Active Substance: SOTALOL
     Indication: Hypertension
     Dosage: ON SET DATE:1999
     Route: 065
  25. Temesta [Concomitant]
     Indication: Depression
     Dates: end: 2020
  26. Temesta [Concomitant]
     Indication: Depression
     Dosage: ON SET DATE:1999
     Dates: end: 2022
  27. TRAMADOL [Concomitant]
     Active Substance: TRAMADOL
     Indication: Pain
     Dates: start: 20200810, end: 20200813
  28. TRAMADOL [Concomitant]
     Active Substance: TRAMADOL
     Indication: Pain
     Route: 065
     Dates: start: 20200810, end: 20200813
  29. PENTACARINAT [Concomitant]
     Active Substance: PENTAMIDINE ISETHIONATE
     Indication: Infection prophylaxis
     Dates: start: 20200810, end: 20221028
  30. PENTACARINAT [Concomitant]
     Active Substance: PENTAMIDINE ISETHIONATE
     Indication: Infection prophylaxis
     Route: 065
     Dates: start: 20200810, end: 20221028
  31. TEGELINE [Concomitant]
     Active Substance: HUMAN IMMUNOGLOBULIN G
     Indication: Immunodeficiency
     Dates: start: 20201020, end: 20210427
  32. TEGELINE [Concomitant]
     Active Substance: HUMAN IMMUNOGLOBULIN G
     Indication: Immunodeficiency
     Dates: start: 20201020, end: 20210427
  33. Covid-19 vaccine [Concomitant]
     Indication: COVID-19
     Dates: start: 202101, end: 20210914
  34. Covid-19 vaccine [Concomitant]
     Indication: COVID-19
     Dates: start: 202101, end: 20210914
  35. Covid-19 vaccine [Concomitant]
     Indication: COVID-19
     Route: 030
     Dates: start: 202101, end: 20210914
  36. Covid-19 vaccine [Concomitant]
     Indication: COVID-19
     Dosage: TIME INTERVAL: 1 TOTAL: FIRST DOSE?ONE IN ONCE
     Route: 030
     Dates: start: 202101, end: 202101
  37. Covid-19 vaccine [Concomitant]
     Indication: COVID-19
     Dosage: TIME INTERVAL: 1 TOTAL: SECOND DOSE?ONE IN ONCE
     Route: 030
     Dates: start: 20210914, end: 20210914
  38. ACUPAN [Concomitant]
     Active Substance: NEFOPAM HYDROCHLORIDE
     Indication: Pain
     Dates: start: 20210702, end: 20210706
  39. ACUPAN [Concomitant]
     Active Substance: NEFOPAM HYDROCHLORIDE
     Indication: Pain
     Dates: start: 20210702, end: 20210706
  40. MEROPENEM [Concomitant]
     Active Substance: MEROPENEM
     Indication: Urinary tract infection
     Dates: start: 20220307, end: 20220310
  41. MEROPENEM [Concomitant]
     Active Substance: MEROPENEM
     Indication: Urinary tract infection
     Route: 065
     Dates: start: 20220307, end: 20220310
  42. SODIUM BICARBONATE [Concomitant]
     Active Substance: SODIUM BICARBONATE
     Indication: Fluid replacement
     Dates: start: 20220102, end: 20220105
  43. SODIUM BICARBONATE [Concomitant]
     Active Substance: SODIUM BICARBONATE
     Indication: Fluid replacement
     Route: 065
     Dates: start: 20220102, end: 20220105
  44. CIPROFLOXACIN [Concomitant]
     Active Substance: CIPROFLOXACIN
     Indication: Urinary tract infection
     Dates: start: 20210706, end: 20210724
  45. CIPROFLOXACIN [Concomitant]
     Active Substance: CIPROFLOXACIN
     Indication: Urinary tract infection
     Dates: start: 20210706, end: 20210724
  46. CIPROFLOXACIN [Concomitant]
     Active Substance: CIPROFLOXACIN
     Indication: Urinary tract infection
     Dates: start: 20220310, end: 20220324
  47. CIPROFLOXACIN [Concomitant]
     Active Substance: CIPROFLOXACIN
     Indication: Urinary tract infection
     Dates: start: 20220310, end: 20220324
  48. CIPROFLOXACIN [Concomitant]
     Active Substance: CIPROFLOXACIN
     Indication: Urinary tract infection
     Dates: start: 20210820, end: 20210906
  49. CIPROFLOXACIN [Concomitant]
     Active Substance: CIPROFLOXACIN
     Indication: Urinary tract infection
     Route: 065
     Dates: start: 20210820, end: 20210906
  50. CALCIPARINE [Concomitant]
     Active Substance: HEPARIN CALCIUM
     Indication: Anticoagulant therapy
     Dates: start: 20210703, end: 20210710
  51. CALCIPARINE [Concomitant]
     Active Substance: HEPARIN CALCIUM
     Indication: Anticoagulant therapy
     Route: 065
     Dates: start: 20210703, end: 20210710
  52. PIPERACILLIN SODIUM\TAZOBACTAM SODIUM [Concomitant]
     Active Substance: PIPERACILLIN SODIUM\TAZOBACTAM SODIUM
     Indication: Infection
     Dates: start: 20210702, end: 20210706
  53. PIPERACILLIN SODIUM\TAZOBACTAM SODIUM [Concomitant]
     Active Substance: PIPERACILLIN SODIUM\TAZOBACTAM SODIUM
     Indication: Infection
     Dates: start: 20210702, end: 20210706
  54. AUGMENTIN [Concomitant]
     Active Substance: AMOXICILLIN\CLAVULANATE POTASSIUM
     Indication: Bronchial disorder
     Dates: start: 202206, end: 202206
  55. AUGMENTIN [Concomitant]
     Active Substance: AMOXICILLIN\CLAVULANATE POTASSIUM
     Indication: Bronchial disorder
     Dates: start: 202206, end: 202206
  56. RENVELA [Concomitant]
     Active Substance: SEVELAMER CARBONATE
     Indication: Prophylaxis
     Dates: start: 202007, end: 20201006
  57. RENVELA [Concomitant]
     Active Substance: SEVELAMER CARBONATE
     Indication: Prophylaxis
     Dosage: ON SET DATE: 2022 JUL
     Route: 065
     Dates: end: 20201006
  58. ASPIRIN [Concomitant]
     Active Substance: ASPIRIN
     Indication: Product used for unknown indication
     Dates: start: 20210518
  59. ASPIRIN [Concomitant]
     Active Substance: ASPIRIN
     Indication: Product used for unknown indication
     Route: 065
     Dates: start: 20210518
  60. RINOCL?NIL [Concomitant]
     Indication: Rhinitis
     Dates: start: 202201, end: 202201
  61. RINOCL?NIL [Concomitant]
     Indication: Rhinitis
     Route: 065
     Dates: start: 202201, end: 202201
  62. SPIRAMYCIN [Concomitant]
     Active Substance: SPIRAMYCIN
     Indication: Bronchial disorder
     Dates: start: 202202, end: 202202
  63. SPIRAMYCIN [Concomitant]
     Active Substance: SPIRAMYCIN
     Indication: Bronchial disorder
     Route: 065
     Dates: start: 202202, end: 202202
  64. AMLOR Amlodipine [Concomitant]
     Indication: Blood pressure management
     Dates: start: 2021
  65. AMLOR Amlodipine [Concomitant]
     Indication: Blood pressure management
     Route: 065
     Dates: start: 2021
  66. HIZENTRA [Concomitant]
     Active Substance: HUMAN IMMUNOGLOBULIN G
     Indication: Infection prophylaxis
     Dates: start: 20221028
  67. HIZENTRA [Concomitant]
     Active Substance: HUMAN IMMUNOGLOBULIN G
     Indication: Infection prophylaxis
     Route: 065
     Dates: start: 20221028
  68. PRISTINAMYCIN [Concomitant]
     Active Substance: PRISTINAMYCIN
     Indication: Bronchial disorder
     Dates: start: 202205, end: 202205
  69. PRISTINAMYCIN [Concomitant]
     Active Substance: PRISTINAMYCIN
     Indication: Bronchial disorder
     Route: 065
     Dates: start: 202205, end: 202205
  70. TAHOR [Concomitant]
     Active Substance: ATORVASTATIN CALCIUM
     Indication: Hypolipidaemia
     Dates: start: 20210518
  71. TAHOR [Concomitant]
     Active Substance: ATORVASTATIN CALCIUM
     Indication: Hypolipidaemia
     Route: 065
     Dates: start: 20210518
  72. NEOVIS [Concomitant]
     Indication: Dry eye
     Dates: start: 2022
  73. NEOVIS [Concomitant]
     Indication: Dry eye
     Route: 065
     Dates: start: 2022
  74. PAROXETINE HYDROCHLORIDE [Concomitant]
     Active Substance: PAROXETINE HYDROCHLORIDE
     Indication: Antidepressant therapy
     Dates: start: 2021
  75. PAROXETINE HYDROCHLORIDE [Concomitant]
     Active Substance: PAROXETINE HYDROCHLORIDE
     Indication: Antidepressant therapy
     Route: 065
     Dates: start: 2021
  76. Vaccination anti covid19 [Concomitant]
     Indication: COVID-19 immunisation
     Dates: start: 2021, end: 2022
  77. Vaccination anti covid19 [Concomitant]
     Indication: COVID-19 immunisation
     Dates: start: 2021, end: 2022
  78. Vaccination anti covid19 [Concomitant]
     Indication: COVID-19 immunisation
     Route: 030
     Dates: start: 2021, end: 2022
  79. AREDIA [Concomitant]
     Active Substance: PAMIDRONATE DISODIUM
     Indication: Hypercalcaemia
     Dates: start: 20230425, end: 20230425
  80. EBASTINE [Concomitant]
     Active Substance: EBASTINE
     Indication: Rhinitis allergic
     Dates: start: 20230324
  81. CLAFORAN [Concomitant]
     Active Substance: CEFOTAXIME SODIUM
     Indication: Productive cough
     Dates: start: 20230228, end: 20230307
  82. Calcitonine [Concomitant]
     Indication: Hypercalcaemia
  83. ALBUTEROL [Concomitant]
     Active Substance: ALBUTEROL
     Indication: Productive cough
     Dates: start: 20230207, end: 20230427
  84. UNSPECIFIED INGREDIENT [Concomitant]
     Active Substance: UNSPECIFIED INGREDIENT
     Indication: Hypercalcaemia
     Dates: start: 20230413
  85. BECLOMETHASONE [Concomitant]
     Active Substance: BECLOMETHASONE
     Indication: Rhinitis allergic
     Dates: start: 20230324
  86. NASONEX [Concomitant]
     Active Substance: MOMETASONE FUROATE
     Indication: Productive cough
     Dates: start: 20230207
  87. MIDAZOLAM [Concomitant]
     Active Substance: MIDAZOLAM
     Indication: Product used for unknown indication
     Dates: start: 20230427

REACTIONS (18)
  - Richter^s syndrome [Fatal]
  - Abdominal pain [Recovered/Resolved]
  - Aortic bypass [Recovered/Resolved]
  - Acute kidney injury [Recovered/Resolved]
  - Pyelonephritis [Recovered/Resolved]
  - Asthenia [Not Recovered/Not Resolved]
  - Rhinitis [Not Recovered/Not Resolved]
  - Postoperative respiratory failure [Recovered/Resolved]
  - C-reactive protein increased [Recovered/Resolved]
  - Back pain [Recovered/Resolved]
  - Musculoskeletal pain [Not Recovered/Not Resolved]
  - Diarrhoea [Recovered/Resolved]
  - Acute kidney injury [Recovered/Resolved]
  - Urinary tract infection [Recovered/Resolved]
  - Bronchitis [Not Recovered/Not Resolved]
  - Cough [Recovered/Resolved]
  - Diarrhoea [Recovered/Resolved]
  - Dry eye [Not Recovered/Not Resolved]

NARRATIVE: CASE EVENT DATE: 20200824
